FAERS Safety Report 8525219 (Version 18)
Quarter: 2015Q1

REPORT INFORMATION
  Report Type: Report from Study
  Country: AU (occurrence: AU)
  Receive Date: 20120423
  Receipt Date: 20150109
  Transmission Date: 20150721
  Serious: Yes (Death, Other)
  Sender: FDA-Public Use
  Company Number: PHNR2007AU00520

PATIENT
  Age: 39 Year
  Sex: Male

DRUGS (6)
  1. CLOZARIL [Suspect]
     Active Substance: CLOZAPINE
     Dosage: 300 MG, QD
     Route: 048
     Dates: start: 20030707, end: 20061020
  2. CLOZARIL [Suspect]
     Active Substance: CLOZAPINE
     Dosage: 50 MG - 300 MG QD
     Route: 048
     Dates: start: 20031107
  3. CLOZARIL [Suspect]
     Active Substance: CLOZAPINE
     Dosage: 25 MG - 400 MG QD
     Route: 048
     Dates: start: 19941204, end: 20030605
  4. CLOZARIL [Suspect]
     Active Substance: CLOZAPINE
     Dosage: 300 MG, QD
     Route: 048
     Dates: start: 20131104
  5. INTERFERON NOS [Concomitant]
     Active Substance: INTERFERON
     Indication: PRODUCT USED FOR UNKNOWN INDICATION
     Dosage: UNK
     Route: 065
  6. CLOZARIL [Suspect]
     Active Substance: CLOZAPINE
     Indication: SCHIZOPHRENIA
     Dosage: 300 MG, FOUR WEEKLY
     Route: 048
     Dates: start: 19931019, end: 19941123

REACTIONS (6)
  - Agitation [Unknown]
  - Death [Fatal]
  - Cytopenia [Unknown]
  - Alanine aminotransferase increased [Unknown]
  - Autoimmune neutropenia [Unknown]
  - Hypersplenism [Unknown]

NARRATIVE: CASE EVENT DATE: 200611
